FAERS Safety Report 13024556 (Version 1)
Quarter: 2016Q4

REPORT INFORMATION
  Report Type: Report from Study
  Country: None (occurrence: US)
  Receive Date: 20161213
  Receipt Date: 20161213
  Transmission Date: 20170207
  Serious: Yes (Hospitalization)
  Sender: FDA-Public Use
  Company Number: US-ABBVIE-16P-163-1574152-00

PATIENT
  Age: 74 Year
  Sex: Female
  Weight: 82.9 kg

DRUGS (22)
  1. VENETOCLAX [Suspect]
     Active Substance: VENETOCLAX
     Route: 048
     Dates: start: 20160221, end: 20160221
  2. ZYLOPRIM [Concomitant]
     Active Substance: ALLOPURINOL
     Indication: PROPHYLAXIS
     Route: 048
     Dates: start: 20160218, end: 20160224
  3. MYCAMINE [Concomitant]
     Active Substance: MICAFUNGIN SODIUM
     Indication: PROPHYLAXIS
     Dosage: 100-50 MG
     Route: 042
     Dates: start: 20160218
  4. ONDANSETRON [Concomitant]
     Active Substance: ONDANSETRON
     Indication: PROPHYLAXIS OF NAUSEA AND VOMITING
  5. HEPARIN PRESERVATIVE FREE [Concomitant]
     Indication: CATHETER MANAGEMENT
     Route: 040
     Dates: start: 20160220
  6. LEVAQUIN [Concomitant]
     Active Substance: LEVOFLOXACIN
     Indication: BACTERIAL INFECTION
  7. VESICARE [Concomitant]
     Active Substance: SOLIFENACIN SUCCINATE
     Indication: HYPERTONIC BLADDER
     Route: 048
     Dates: start: 2016
  8. MICARDIS [Concomitant]
     Active Substance: TELMISARTAN
     Indication: HYPERTENSION
     Route: 048
     Dates: start: 2016
  9. MULTIVITAMIN [Concomitant]
     Active Substance: VITAMINS
     Indication: ROUTINE HEALTH MAINTENANCE
     Route: 048
     Dates: start: 20160201
  10. DECITABINE. [Suspect]
     Active Substance: DECITABINE
     Indication: ACUTE MYELOID LEUKAEMIA
     Route: 042
     Dates: start: 20160220
  11. ZOVIRAX [Concomitant]
     Active Substance: ACYCLOVIR
     Indication: ANTIVIRAL PROPHYLAXIS
     Route: 048
     Dates: start: 20160218, end: 20160711
  12. MYCAMINE [Concomitant]
     Active Substance: MICAFUNGIN SODIUM
     Indication: FUNGAL INFECTION
  13. VENETOCLAX [Suspect]
     Active Substance: VENETOCLAX
     Route: 048
     Dates: start: 20160222
  14. FLUOROURACIL 5% EXTERNAL CREAM [Concomitant]
     Indication: SKIN CANCER
     Route: 061
     Dates: start: 20151028
  15. VENETOCLAX [Suspect]
     Active Substance: VENETOCLAX
     Indication: ACUTE MYELOID LEUKAEMIA
     Route: 048
     Dates: start: 20160220, end: 20160220
  16. ONDANSETRON [Concomitant]
     Active Substance: ONDANSETRON
     Indication: PREMEDICATION
  17. MEVACOR [Concomitant]
     Active Substance: LOVASTATIN
     Indication: DYSLIPIDAEMIA
     Route: 048
     Dates: start: 2016
  18. ONDANSETRON [Concomitant]
     Active Substance: ONDANSETRON
     Indication: CHEMOTHERAPY
     Route: 042
     Dates: start: 20160220
  19. VITAMIN D3 [Concomitant]
     Active Substance: CHOLECALCIFEROL
     Indication: ROUTINE HEALTH MAINTENANCE
     Route: 048
     Dates: start: 20160201
  20. ZYLOPRIM [Concomitant]
     Active Substance: ALLOPURINOL
     Indication: TUMOUR LYSIS SYNDROME
     Route: 048
     Dates: start: 20160225
  21. LEVAQUIN [Concomitant]
     Active Substance: LEVOFLOXACIN
     Indication: PROPHYLAXIS
     Dosage: 250-500 MG
     Route: 048
     Dates: start: 20160218, end: 20160711
  22. ONDANSETRON [Concomitant]
     Active Substance: ONDANSETRON
     Indication: NAUSEA

REACTIONS (2)
  - Diverticulitis [Recovered/Resolved]
  - Febrile neutropenia [Recovered/Resolved]

NARRATIVE: CASE EVENT DATE: 20160301
